FAERS Safety Report 6251649-5 (Version None)
Quarter: 2009Q2

REPORT INFORMATION
  Report Type: 
  Country: None (occurrence: None)
  Receive Date: 20090630
  Receipt Date: 20090630
  Transmission Date: 20091009
  Serious: Yes (Other)
  Sender: FDA-Public Use
  Company Number: US-PFIZER INC-2009160686

PATIENT
  Sex: Male
  Weight: 158.75 kg

DRUGS (5)
  1. NEURONTIN [Suspect]
     Dosage: 800 MG, 3X/DAY
  2. METHADONE [Concomitant]
  3. MARINOL [Concomitant]
  4. CYMBALTA [Concomitant]
  5. DRUG, UNSPECIFIED [Concomitant]
     Indication: DIABETES MELLITUS
     Dosage: UNK

REACTIONS (4)
  - FEELING ABNORMAL [None]
  - INFECTION [None]
  - PANCYTOPENIA [None]
  - RENAL FAILURE ACUTE [None]
